FAERS Safety Report 18417468 (Version 2)
Quarter: 2021Q1

REPORT INFORMATION
  Report Type: Spontaneous
  Country: US (occurrence: US)
  Receive Date: 20201022
  Receipt Date: 20210122
  Transmission Date: 20210419
  Serious: No
  Sender: FDA-Public Use
  Company Number: 2020SGN03088

PATIENT
  Sex: Female

DRUGS (4)
  1. TUKYSA [Suspect]
     Active Substance: TUCATINIB
     Indication: BREAST CANCER FEMALE
     Dosage: UNK UNK, BID
     Dates: start: 20200708
  2. TUKYSA [Suspect]
     Active Substance: TUCATINIB
     Dosage: UNK UNK, BID
     Dates: start: 20200708
  3. XELODA [Suspect]
     Active Substance: CAPECITABINE
     Indication: BREAST CANCER FEMALE
  4. HERCEPTIN [Concomitant]
     Active Substance: TRASTUZUMAB
     Indication: BREAST CANCER FEMALE
     Dosage: UNK

REACTIONS (14)
  - Tooth disorder [Unknown]
  - Neoplasm progression [Unknown]
  - Unevaluable event [Unknown]
  - Product dose omission issue [Unknown]
  - Emotional disorder [Unknown]
  - Fluid intake reduced [Unknown]
  - Diarrhoea [Unknown]
  - Sensitive skin [Unknown]
  - Hepatic enzyme increased [Unknown]
  - Memory impairment [Unknown]
  - Skin disorder [Recovering/Resolving]
  - Malaise [Unknown]
  - Pneumonia [Unknown]
  - Nausea [Unknown]
